FAERS Safety Report 6107461-0 (Version None)
Quarter: 2009Q1

REPORT INFORMATION
  Report Type: 
  Country: None (occurrence: None)
  Receive Date: 20090309
  Receipt Date: 20090303
  Transmission Date: 20090719
  Serious: Yes (Disabling)
  Sender: FDA-Public Use
  Company Number: JP-ASTRAZENECA-2009AP00889

PATIENT
  Age: 75 Year
  Sex: Female
  Weight: 42 kg

DRUGS (9)
  1. IRESSA [Suspect]
     Indication: NON-SMALL CELL LUNG CANCER
     Route: 048
     Dates: start: 20070109, end: 20080108
  2. IRESSA [Suspect]
     Route: 048
     Dates: start: 20080109, end: 20090129
  3. PL [Suspect]
     Indication: NASOPHARYNGITIS
     Route: 048
     Dates: start: 20090126, end: 20090129
  4. TRANSAMIN [Suspect]
     Indication: NASOPHARYNGITIS
     Route: 048
     Dates: start: 20090126, end: 20090129
  5. MAINTATE [Concomitant]
     Indication: HYPERTENSION
     Route: 048
     Dates: start: 20030905, end: 20090127
  6. THYRADIN [Concomitant]
     Indication: HYPOTHYROIDISM
     Route: 048
     Dates: start: 20030916, end: 20040221
  7. THYRADIN [Concomitant]
     Route: 048
     Dates: start: 20040203, end: 20090221
  8. EBASTEL [Concomitant]
     Indication: ECZEMA
     Route: 048
     Dates: start: 20070516, end: 20090129
  9. EVISTA [Concomitant]
     Indication: OSTEOPOROSIS
     Route: 048
     Dates: start: 20080209, end: 20090129

REACTIONS (7)
  - HAEMODIALYSIS [None]
  - METASTASES TO CENTRAL NERVOUS SYSTEM [None]
  - NASOPHARYNGITIS [None]
  - RASH [None]
  - RENAL FAILURE ACUTE [None]
  - RENAL TUBULAR NECROSIS [None]
  - THERAPEUTIC RESPONSE DECREASED [None]
